FAERS Safety Report 16664928 (Version 2)
Quarter: 2019Q3

REPORT INFORMATION
  Report Type: Spontaneous
  Country: DE (occurrence: DE)
  Receive Date: 20190803
  Receipt Date: 20190813
  Transmission Date: 20191004
  Serious: Yes (Hospitalization, Other)
  Sender: FDA-Public Use
  Company Number: DE-AUROBINDO-AUR-APL-2019-044518

PATIENT

DRUGS (4)
  1. LEVETIRACETAM PUREN 500 MG FILM COATED TABLET [Suspect]
     Active Substance: LEVETIRACETAM
     Indication: EPILEPSY
     Dosage: UNK UNK, DAILY
     Route: 048
     Dates: start: 20190507, end: 20190605
  2. PANTOPRAZOL [Concomitant]
     Active Substance: PANTOPRAZOLE SODIUM
     Indication: PEPTIC ULCER
     Dosage: 20 MILLIGRAM, DAILY
     Route: 065
     Dates: start: 2005
  3. LEVETIRACETAM PUREN 500 MG FILM COATED TABLET [Suspect]
     Active Substance: LEVETIRACETAM
     Dosage: 1000 MILLIGRAM, DAILY
     Route: 048
     Dates: start: 201905, end: 20190605
  4. LEVETIRACETAM STADA [Suspect]
     Active Substance: LEVETIRACETAM
     Indication: EPILEPSY
     Dosage: 1000 MILLIGRAM, DAILY
     Route: 048
     Dates: start: 20190507, end: 20190511

REACTIONS (17)
  - Feeling abnormal [Recovered/Resolved]
  - Disturbance in attention [Recovering/Resolving]
  - Memory impairment [Recovering/Resolving]
  - Coordination abnormal [Recovering/Resolving]
  - Abnormal behaviour [Recovering/Resolving]
  - Bradyphrenia [Recovered/Resolved]
  - Tremor [Recovering/Resolving]
  - Skin disorder [Recovered/Resolved]
  - Head discomfort [Recovering/Resolving]
  - Suicidal ideation [Recovered/Resolved]
  - Dizziness [Recovering/Resolving]
  - Aphasia [Recovering/Resolving]
  - Panic attack [Recovering/Resolving]
  - Anxiety [Recovering/Resolving]
  - Thinking abnormal [Recovered/Resolved]
  - Dysarthria [Recovering/Resolving]
  - Paraesthesia [Recovered/Resolved]

NARRATIVE: CASE EVENT DATE: 201905
